FAERS Safety Report 7479594-8 (Version None)
Quarter: 2011Q2

REPORT INFORMATION
  Report Type: 
  Country: None (occurrence: None)
  Receive Date: 20110513
  Receipt Date: 20091113
  Transmission Date: 20111010
  Serious: Yes (Death, Hospitalization, Other)
  Sender: FDA-Public Use
  Company Number: US-BAYER-200939675NA

PATIENT
  Age: 53 Year
  Sex: Female
  Weight: 110 kg

DRUGS (16)
  1. MANNITOL [Concomitant]
     Dosage: 50ML
     Route: 042
     Dates: start: 20040824
  2. BENICAR [Concomitant]
     Dosage: 40/125 1 TABLE DAILY
     Route: 048
     Dates: start: 20040727
  3. MANNITOL [Concomitant]
     Dosage: UNK
     Dates: start: 20041103
  4. TRASYLOL [Suspect]
     Indication: VALVULOPLASTY CARDIAC
     Dosage: 1 ML TEST DOSE THEN 100ML BOLUS THEN 75ML/HR INFUSION
     Route: 042
     Dates: start: 20040824, end: 20040824
  5. LASIX [Concomitant]
     Dosage: 40 MG, QD
     Route: 048
     Dates: start: 20040811
  6. DIOVAN [Concomitant]
     Dosage: 80MG
     Route: 048
  7. FENTANYL [Concomitant]
     Dosage: UNK
     Dates: start: 20041103
  8. DOBUTREX [Concomitant]
     Dosage: UNK
     Route: 042
     Dates: start: 20040824
  9. TRASYLOL [Suspect]
     Indication: MITRAL VALVE REPAIR
     Dosage: 200ML PUMP PRIME
     Route: 042
     Dates: start: 20041103, end: 20041103
  10. NORVASC [Concomitant]
     Dosage: 5 MG, QD
     Dates: start: 20040811
  11. DOPAMINE HCL [Concomitant]
     Dosage: 400MG
     Route: 042
     Dates: start: 20040824
  12. HEPARIN [Concomitant]
     Dosage: UNK
     Dates: start: 20041103
  13. HEPARIN [Concomitant]
     Dosage: 10ML
     Route: 042
     Dates: start: 20040824
  14. PROTAMINE SULFATE [Concomitant]
     Dosage: UNK
     Dates: start: 20040824
  15. PROTONIX [Concomitant]
     Dosage: 40MG
     Route: 048
  16. FENTANYL [Concomitant]
     Dosage: 100MCG
     Route: 042
     Dates: start: 20040824

REACTIONS (14)
  - RENAL FAILURE [None]
  - CEREBROVASCULAR ACCIDENT [None]
  - ANHEDONIA [None]
  - DEATH [None]
  - RENAL INJURY [None]
  - STRESS [None]
  - FEAR [None]
  - RENAL IMPAIRMENT [None]
  - PAIN [None]
  - INJURY [None]
  - MULTI-ORGAN FAILURE [None]
  - ANXIETY [None]
  - EMOTIONAL DISTRESS [None]
  - UNEVALUABLE EVENT [None]
